FAERS Safety Report 10151050 (Version 1)
Quarter: 2014Q2

REPORT INFORMATION
  Report Type: Spontaneous
  Country: IT (occurrence: IT)
  Receive Date: 20140502
  Receipt Date: 20140502
  Transmission Date: 20141212
  Serious: Yes (Hospitalization)
  Sender: FDA-Public Use
  Company Number: IT-PFIZER INC-2014118489

PATIENT
  Age: 86 Year
  Sex: Female

DRUGS (11)
  1. HALCION [Suspect]
     Indication: ANXIETY
     Dosage: 1.5 DF, DAILY
     Route: 048
     Dates: start: 20140101, end: 20140304
  2. LYRICA [Suspect]
     Indication: NEUROPATHY PERIPHERAL
     Dosage: 4 DF, DAILY
     Route: 048
     Dates: start: 20140101, end: 20140304
  3. AMARYL [Suspect]
     Indication: DIABETES MELLITUS
     Dosage: 1 DF, DAILY
     Route: 048
     Dates: start: 20140101, end: 20140304
  4. PRAMIPEXOLE [Concomitant]
     Dosage: 0.36 MG, UNK
     Route: 048
  5. CORDARONE [Concomitant]
     Dosage: 0.5 DF, UNK
     Route: 048
  6. GALVUS [Concomitant]
     Dosage: 1 DF, UNK
     Route: 048
  7. LORTAAN [Concomitant]
     Dosage: 2 DF, UNK
     Route: 048
  8. DUOPLAVIN [Concomitant]
     Dosage: 1 DF, UNK
     Route: 048
  9. PEPTAZOL [Concomitant]
     Dosage: 1 DF, UNK
     Route: 048
  10. LASIX [Concomitant]
     Dosage: 1 DF, UNK
     Route: 048
  11. CONGESCOR [Concomitant]
     Route: 048

REACTIONS (5)
  - Hyperpyrexia [Unknown]
  - Hypoglycaemia [Unknown]
  - Jaundice [Unknown]
  - Pyrexia [Unknown]
  - Sopor [Unknown]
